FAERS Safety Report 8580572-6 (Version None)
Quarter: 2012Q3

REPORT INFORMATION
  Report Type: 
  Country: None (occurrence: None)
  Receive Date: 20120808
  Receipt Date: 20120716
  Transmission Date: 20120928
  Serious: Yes (Other)
  Sender: FDA-Public Use
  Company Number: PHHY2011BR48974

PATIENT
  Age: 52 Year
  Sex: Female

DRUGS (3)
  1. FORMOTEROL FUMARATE [Suspect]
     Indication: ASTHMA
     Dosage: 1 OR 2 INHALATIONS PER DAY
  2. FORMOTEROL FUMARATE [Suspect]
     Dosage: 2 DF, QD
  3. FORMOTEROL FUMARATE [Suspect]
     Dosage: 3 DF, QD

REACTIONS (4)
  - DYSGEUSIA [None]
  - THROAT IRRITATION [None]
  - HYPERTHYROIDISM [None]
  - INFLUENZA [None]
